FAERS Safety Report 12145512 (Version 2)
Quarter: 2016Q4

REPORT INFORMATION
  Report Type: Spontaneous
  Country: US (occurrence: US)
  Receive Date: 20160304
  Receipt Date: 20161115
  Transmission Date: 20170207
  Serious: No
  Sender: FDA-Public Use
  Company Number: US-BRISTOL-MYERS SQUIBB COMPANY-BMS-2016-015867

PATIENT
  Age: 67 Year
  Sex: Female

DRUGS (1)
  1. SPRYCEL [Suspect]
     Active Substance: DASATINIB
     Indication: CHRONIC MYELOID LEUKAEMIA
     Dosage: 50 MG, QD
     Route: 048
     Dates: start: 20160119

REACTIONS (5)
  - Throat irritation [Unknown]
  - Head discomfort [Unknown]
  - Pyrexia [Unknown]
  - Prescribed underdose [Unknown]
  - Chills [Unknown]

NARRATIVE: CASE EVENT DATE: 20160225
